FAERS Safety Report 11994544 (Version 2)
Quarter: 2019Q4

REPORT INFORMATION
  Report Type: Spontaneous
  Country: US (occurrence: US)
  Receive Date: 20160203
  Receipt Date: 20191213
  Transmission Date: 20200122
  Serious: No
  Sender: FDA-Public Use
  Company Number: US-UCBSA-2015035137

PATIENT
  Age: 26 Year
  Sex: Male
  Weight: 26.76 kg

DRUGS (2)
  1. KEPPRA [Suspect]
     Active Substance: LEVETIRACETAM
     Indication: PETIT MAL EPILEPSY
     Dosage: 1.75 DF, 2X/DAY (BID); 2 TEASPOONS IN MORNING AND 2 TEASPOONS IN THE EVENING
  2. CLONAZEPAM. [Concomitant]
     Active Substance: CLONAZEPAM
     Indication: PRODUCT USED FOR UNKNOWN INDICATION
     Dosage: 0.125MG 9 TABS ONCE A DAY

REACTIONS (5)
  - Chills [Not Recovered/Not Resolved]
  - Cough [Recovered/Resolved]
  - Product odour abnormal [Unknown]
  - Salivary hypersecretion [Not Recovered/Not Resolved]
  - Pyrexia [Not Recovered/Not Resolved]

NARRATIVE: CASE EVENT DATE: 20151009
